FAERS Safety Report 8833064 (Version 1)
Quarter: 2012Q4

REPORT INFORMATION
  Report Type: 
  Country: US (occurrence: US)
  Receive Date: 20121010
  Receipt Date: 20121010
  Transmission Date: 20130627
  Serious: Yes (Hospitalization, Other)
  Sender: FDA-Public Use
  Company Number: US-PFIZER INC-2012246663

PATIENT

DRUGS (2)
  1. GLUCOTROL [Suspect]
     Dosage: UNK
  2. ACCUPRIL [Suspect]
     Dosage: UNK

REACTIONS (2)
  - Localised infection [Unknown]
  - Renal disorder [Unknown]
